FAERS Safety Report 7498998-0 (Version None)
Quarter: 2011Q2

REPORT INFORMATION
  Report Type: 
  Country: None (occurrence: None)
  Receive Date: 20110524
  Receipt Date: 20110127
  Transmission Date: 20111010
  Serious: Yes (Other)
  Sender: FDA-Public Use
  Company Number: US-BAYER-201036958NA

PATIENT
  Age: 29 Year
  Sex: Female
  Weight: 54.422 kg

DRUGS (4)
  1. DROSPIRENONE AND ETHINYL ESTRADIOL [Suspect]
     Indication: PRODUCT USED FOR UNKNOWN INDICATION
     Route: 048
     Dates: start: 20040116, end: 20060613
  2. YASMIN [Suspect]
     Indication: PRODUCT USED FOR UNKNOWN INDICATION
     Route: 048
     Dates: start: 20040116, end: 20060613
  3. YAZ [Suspect]
     Indication: PRODUCT USED FOR UNKNOWN INDICATION
     Route: 048
     Dates: start: 20040116, end: 20060613
  4. LORTAB [Concomitant]
     Dosage: 5 MG, UNK
     Route: 048
     Dates: start: 20060512

REACTIONS (8)
  - EMOTIONAL DISTRESS [None]
  - CHOLELITHIASIS [None]
  - SCAR [None]
  - PAIN [None]
  - CHOLECYSTITIS [None]
  - GALLBLADDER INJURY [None]
  - INJURY [None]
  - BILIARY COLIC [None]
